FAERS Safety Report 4538561-4 (Version None)
Quarter: 2004Q4

REPORT INFORMATION
  Report Type: 
  Country: None (occurrence: None)
  Receive Date: 20041222
  Receipt Date: 20041209
  Transmission Date: 20050328
  Serious: Yes (Other)
  Sender: FDA-Public Use
  Company Number: 25675

PATIENT
  Age: 72 Year
  Sex: Female

DRUGS (1)
  1. TAMBOCOR [Suspect]
     Indication: ARRHYTHMIA
     Dosage: 200 MG (100 MG, 2 IN 1 DAY (S)) ORAL
     Route: 048
     Dates: start: 20010101, end: 20040101

REACTIONS (6)
  - ADRENOCORTICAL INSUFFICIENCY CHRONIC [None]
  - AUTONOMIC NEUROPATHY [None]
  - DIZZINESS [None]
  - NAUSEA [None]
  - ORTHOSTATIC HYPOTENSION [None]
  - SYNCOPE [None]
